FAERS Safety Report 19720521 (Version 2)
Quarter: 2021Q3

REPORT INFORMATION
  Report Type: Report from Study
  Country: CN (occurrence: CN)
  Receive Date: 20210819
  Receipt Date: 20210825
  Transmission Date: 20211014
  Serious: Yes (Death, Other)
  Sender: FDA-Public Use
  Company Number: CN-BRISTOL-MYERS SQUIBB COMPANY-BMS-2021-082047

PATIENT
  Age: 61 Year
  Sex: Male

DRUGS (3)
  1. CISPLATIN. [Suspect]
     Active Substance: CISPLATIN
     Indication: NON-SMALL CELL LUNG CANCER
     Dosage: 25 MG/M2 (42 MG) ON DAY 1?3
     Route: 065
     Dates: start: 20210803, end: 20210805
  2. DOCETAXEL. [Suspect]
     Active Substance: DOCETAXEL
     Indication: NON-SMALL CELL LUNG CANCER
     Dosage: 60 MG/M2 (101 MG) ON DAY 1
     Route: 065
     Dates: start: 20210803, end: 20210803
  3. NIVOLUMAB [Suspect]
     Active Substance: NIVOLUMAB
     Indication: NON-SMALL CELL LUNG CANCER
     Dosage: 360 MG, ON DAY 1
     Route: 065
     Dates: start: 20210803, end: 20210803

REACTIONS (1)
  - Upper gastrointestinal haemorrhage [Fatal]

NARRATIVE: CASE EVENT DATE: 20210812
